FAERS Safety Report 15372823 (Version 2)
Quarter: 2018Q4

REPORT INFORMATION
  Report Type: Spontaneous
  Country: IT (occurrence: IT)
  Receive Date: 20180912
  Receipt Date: 20181003
  Transmission Date: 20190204
  Serious: Yes (Other)
  Sender: FDA-Public Use
  Company Number: IT-ACCORD-071621

PATIENT
  Age: 7 Decade
  Sex: Male

DRUGS (2)
  1. ETOPOSIDE. [Suspect]
     Active Substance: ETOPOSIDE
     Indication: BIPHASIC MESOTHELIOMA
     Dosage: ON DAYS 1,2 AND 3 OF EACH CYCLE, ONE CYCLE OF THE REGIMEN WAS DEFINED AS A 3-WEEKS INTERVAL
     Route: 042
  2. CARBOPLATIN. [Suspect]
     Active Substance: CARBOPLATIN
     Indication: BIPHASIC MESOTHELIOMA
     Dosage: AT AUC 2 ON DAYS 1, 2 AND 3 OF EACH CYCLE.
     Route: 042

REACTIONS (2)
  - Off label use [Unknown]
  - Bone marrow toxicity [Unknown]
